FAERS Safety Report 18545705 (Version 4)
Quarter: 2021Q1

REPORT INFORMATION
  Report Type: Spontaneous
  Country: US (occurrence: US)
  Receive Date: 20201125
  Receipt Date: 20210107
  Transmission Date: 20210419
  Serious: Yes (Other)
  Sender: FDA-Public Use
  Company Number: US-PFIZER INC-2020463545

PATIENT
  Age: 77 Year
  Sex: Female
  Weight: 73.92 kg

DRUGS (1)
  1. TOVIAZ [Suspect]
     Active Substance: FESOTERODINE FUMARATE
     Indication: URINARY INCONTINENCE
     Dosage: 8 MG, 1X/DAY (1 TABLET A DAY)
     Route: 048

REACTIONS (7)
  - Arthralgia [Unknown]
  - Skin laceration [Unknown]
  - Facial bones fracture [Unknown]
  - Body height decreased [Unknown]
  - Joint injury [Unknown]
  - Drug ineffective [Not Recovered/Not Resolved]
  - Fall [Unknown]
